FAERS Safety Report 5411990-2 (Version None)
Quarter: 2007Q3

REPORT INFORMATION
  Report Type: 
  Country: None (occurrence: None)
  Receive Date: 20070810
  Receipt Date: 20070810
  Transmission Date: 20080115
  Serious: Yes (Hospitalization)
  Sender: FDA-Public Use
  Company Number: None

PATIENT
  Age: 76 Year
  Sex: Male

DRUGS (7)
  1. GEMZAR [Suspect]
     Indication: ADENOCARCINOMA PANCREAS
     Dosage: (DURATION: 2 DAYS PTA)
  2. TAXOTERE [Suspect]
     Indication: ADENOCARCINOMA PANCREAS
     Dosage: (DURATION: 2 DAYS PTA)
  3. OXYCONTIN [Concomitant]
  4. ACTOS [Concomitant]
  5. AMBIEN [Concomitant]
  6. LIPRAM [Concomitant]
  7. ENABLEX [Concomitant]

REACTIONS (4)
  - ASTHENIA [None]
  - CONFUSIONAL STATE [None]
  - METASTASES TO LIVER [None]
  - MOBILITY DECREASED [None]
